FAERS Safety Report 5050077-8 (Version None)
Quarter: 2006Q3

REPORT INFORMATION
  Report Type: 
  Country: None (occurrence: None)
  Receive Date: 20060713
  Receipt Date: 20060703
  Transmission Date: 20061208
  Serious: Yes (Other)
  Sender: FDA-Public Use
  Company Number: SE-JNJFOC-20060604477

PATIENT
  Age: 3 Decade
  Sex: Female

DRUGS (1)
  1. SPORANOX [Suspect]
     Indication: PROPHYLAXIS
     Route: 065

REACTIONS (1)
  - EPILEPSY [None]
